FAERS Safety Report 8808087 (Version 1)
Quarter: 2012Q4

REPORT INFORMATION
  Report Type: 
  Country: CA (occurrence: CA)
  Receive Date: 20120926
  Receipt Date: 20120926
  Transmission Date: 20130627
  Serious: Yes (Hospitalization, Other)
  Sender: FDA-Public Use
  Company Number: CA-ABBOTT-12P-028-0983347-00

PATIENT
  Age: 52 Year
  Sex: Female

DRUGS (8)
  1. DEPAKOTE [Suspect]
     Indication: PRODUCT USED FOR UNKNOWN INDICATION
     Dates: end: 201208
  2. DEPAKOTE [Suspect]
     Dosage: 250mg 3 times a day and 125mg at hour of sleep
     Dates: start: 201208
  3. CLOZARIL [Suspect]
     Indication: SCHIZOAFFECTIVE DISORDER
     Dosage: 300 mg at hour of sleep
     Route: 048
     Dates: start: 20110330
  4. NORVASC [Suspect]
     Indication: HYPERTENSION
  5. DIOVAN [Suspect]
     Indication: HYPERTENSION
  6. ATIVAN [Concomitant]
     Indication: ANXIETY
     Dosage: 1mg 3 times a day + 2mg at hour of sleep if anxiety
  7. PANTOLOC [Concomitant]
     Indication: PRODUCT USED FOR UNKNOWN INDICATION
  8. SYNTHROID [Concomitant]
     Indication: PRODUCT USED FOR UNKNOWN INDICATION

REACTIONS (4)
  - Alcoholism [Recovered/Resolved]
  - Hypotension [Recovered/Resolved]
  - Hyponatraemia [Recovered/Resolved]
  - Drug level below therapeutic [Recovered/Resolved]
